FAERS Safety Report 4371705-6 (Version None)
Quarter: 2004Q2

REPORT INFORMATION
  Report Type: 
  Country: None (occurrence: None)
  Receive Date: 20040602
  Receipt Date: 20040517
  Transmission Date: 20050107
  Serious: Yes (Other)
  Sender: FDA-Public Use
  Company Number: DE-JNJFOC-20040306564

PATIENT
  Age: 76 Year
  Sex: Male
  Weight: 63.5 kg

DRUGS (9)
  1. TOPAMAX [Suspect]
     Indication: EPILEPSY
     Dosage: 300 MG, IN 1 DAY, ORAL
     Route: 048
  2. NORVASC [Suspect]
  3. CLONIDIN (CLONIDINE) [Concomitant]
  4. NIFICAL (NIFEDIPINE) [Concomitant]
  5. ACETYLCYSTEINE [Concomitant]
  6. KALINOR (POTASSIUM CHLORIDE) [Concomitant]
  7. PREDNISONE [Concomitant]
  8. LASIX [Concomitant]
  9. LACTULOSE [Concomitant]

REACTIONS (6)
  - ANTIMITOCHONDRIAL ANTIBODY POSITIVE [None]
  - ANTINUCLEAR ANTIBODY POSITIVE [None]
  - AUTOIMMUNE HEPATITIS [None]
  - CHOLESTASIS [None]
  - DRUG INTERACTION [None]
  - HEPATITIS [None]
